FAERS Safety Report 8953266 (Version 2)
Quarter: 2012Q4

REPORT INFORMATION
  Report Type: 
  Country: JP (occurrence: JP)
  Receive Date: 20121206
  Receipt Date: 20121217
  Transmission Date: 20130627
  Serious: Yes (Death)
  Sender: FDA-Public Use
  Company Number: JP-BAYER-2012-125177

PATIENT
  Age: 67 Year
  Sex: Male
  Weight: 59 kg

DRUGS (6)
  1. NEXAVAR [Suspect]
     Indication: CARCINOMA HEPATOCELLULAR
     Dosage: Daily dose 400 mg
     Route: 048
     Dates: start: 20120919, end: 20121110
  2. KANAMYCIN [Suspect]
     Indication: HYPERAMMONAEMIA
     Dosage: Daily dose 1500 mg
     Route: 048
     Dates: start: 20121024, end: 20121110
  3. URSO [Suspect]
     Indication: HEPATITIS C
     Dosage: Daily dose 600 mg
     Route: 048
     Dates: start: 20120815, end: 20121110
  4. MEDROL [Suspect]
     Indication: PYREXIA
     Dosage: Daily dose 8 mg
     Route: 048
     Dates: start: 20120930, end: 20121110
  5. MEDROL [Suspect]
     Indication: MALAISE
  6. IA-CALL [Concomitant]
     Dosage: Daily dose 100 mg
     Route: 013
     Dates: start: 20120813

REACTIONS (1)
  - Pneumocystis jiroveci pneumonia [Fatal]
